FAERS Safety Report 5817503-5 (Version None)
Quarter: 2008Q3

REPORT INFORMATION
  Report Type: 
  Country: None (occurrence: None)
  Receive Date: 20080722
  Receipt Date: 20080710
  Transmission Date: 20090109
  Serious: Yes (Hospitalization)
  Sender: FDA-Public Use
  Company Number: US-JNJFOC-20080703642

PATIENT
  Sex: Female

DRUGS (2)
  1. DURAGESIC-100 [Suspect]
     Indication: PAIN
     Route: 062
  2. METHADONE HCL [Concomitant]
     Route: 048

REACTIONS (3)
  - FIBROMYALGIA [None]
  - HYPERHIDROSIS [None]
  - HYSTERECTOMY [None]
